FAERS Safety Report 8904470 (Version 2)
Quarter: 2012Q4

REPORT INFORMATION
  Report Type: 
  Country: US (occurrence: US)
  Receive Date: 20121113
  Receipt Date: 20121207
  Transmission Date: 20130627
  Serious: No
  Sender: FDA-Public Use
  Company Number: US-009507513-1211USA004737

PATIENT
  Sex: Female

DRUGS (2)
  1. PEGINTRON [Suspect]
     Indication: HEPATITIS C
     Dosage: UNK
     Route: 058
     Dates: start: 20121105
  2. RIBAVIRIN [Suspect]
     Indication: HEPATITIS C
     Dosage: UNK
     Route: 048
     Dates: start: 20121105

REACTIONS (9)
  - Influenza [Unknown]
  - Back pain [Unknown]
  - Anger [Unknown]
  - Dysgeusia [Unknown]
  - Irritability [Unknown]
  - Abdominal pain upper [Unknown]
  - Depression [Unknown]
  - Diarrhoea [Unknown]
  - Pyrexia [Unknown]
